FAERS Safety Report 14551282 (Version 1)
Quarter: 2018Q1

REPORT INFORMATION
  Report Type: Spontaneous
  Country: US (occurrence: US)
  Receive Date: 20180220
  Receipt Date: 20180220
  Transmission Date: 20180509
  Serious: No
  Sender: FDA-Public Use
  Company Number: US-TEVA-813726ACC

PATIENT
  Sex: Female

DRUGS (2)
  1. TAMOXIFEN [Suspect]
     Active Substance: TAMOXIFEN
     Indication: PROPHYLACTIC CHEMOTHERAPY
     Dosage: BOTTLE OF 60
     Dates: start: 201704, end: 201709
  2. CLARITIN [Concomitant]
     Active Substance: LORATADINE
     Indication: HYPERSENSITIVITY

REACTIONS (7)
  - Malaise [Unknown]
  - Arthralgia [Unknown]
  - Sleep disorder [Unknown]
  - Feeling abnormal [Unknown]
  - Product quality issue [Unknown]
  - Gastrooesophageal reflux disease [Unknown]
  - Headache [Unknown]

NARRATIVE: CASE EVENT DATE: 201709
